FAERS Safety Report 10384171 (Version 1)
Quarter: 2014Q3

REPORT INFORMATION
  Report Type: Spontaneous
  Country: TN (occurrence: TN)
  Receive Date: 20140814
  Receipt Date: 20140814
  Transmission Date: 20150326
  Serious: Yes (Other)
  Sender: FDA-Public Use
  Company Number: PHHY2014TN095561

PATIENT
  Age: 58 Year
  Sex: Female

DRUGS (4)
  1. METFORMIN [Suspect]
     Active Substance: METFORMIN HYDROCHLORIDE
     Indication: TYPE 2 DIABETES MELLITUS
     Dosage: 2550 MG, PER DAY
     Dates: start: 2007
  2. INSULIN [Concomitant]
     Active Substance: INSULIN NOS
  3. GLIBENCLAMIDE [Concomitant]
     Active Substance: GLYBURIDE
  4. METFORMIN [Suspect]
     Active Substance: METFORMIN HYDROCHLORIDE
     Dosage: 1700 MG, PER DAY
     Dates: start: 201002

REACTIONS (7)
  - Lichen planus [Recovered/Resolved]
  - Skin hypertrophy [Recovered/Resolved]
  - Oral disorder [Recovered/Resolved]
  - Acanthosis [Recovered/Resolved]
  - Dermatitis [Recovered/Resolved]
  - Rash generalised [Recovered/Resolved]
  - Lymphocytic infiltration [Recovered/Resolved]
